FAERS Safety Report 4966960-5 (Version None)
Quarter: 2006Q2

REPORT INFORMATION
  Report Type: 
  Country: None (occurrence: None)
  Receive Date: 20060403
  Receipt Date: 20060322
  Transmission Date: 20061013
  Serious: Yes (Other)
  Sender: FDA-Public Use
  Company Number: 223072

PATIENT
  Age: 11 Year
  Sex: Male
  Weight: 32.2 kg

DRUGS (1)
  1. NUTROPIN AQ [Suspect]
     Indication: GROWTH HORMONE DEFICIENCY
     Dosage: 2 MG, 6/WEEK
     Dates: start: 20050510

REACTIONS (2)
  - HYPOTHALAMO-PITUITARY DISORDERS [None]
  - SALIVARY GLAND CYST [None]
